FAERS Safety Report 9740408 (Version 1)
Quarter: 2013Q4

REPORT INFORMATION
  Report Type: Report from Study
  Country: CA (occurrence: CA)
  Receive Date: 20131209
  Receipt Date: 20131209
  Transmission Date: 20140711
  Serious: Yes (Death)
  Sender: FDA-Public Use
  Company Number: CA-BAXTER-2013BAX048788

PATIENT
  Sex: 0

DRUGS (4)
  1. PROCYTOX (CYCLOPHOSPHAMIDE) 200MG/VIAL [Suspect]
     Indication: NON-HODGKIN^S LYMPHOMA
     Dosage: 1.75 G/M^2
  2. ETOPOSIDE [Suspect]
     Indication: NON-HODGKIN^S LYMPHOMA
  3. CISPLATIN [Suspect]
     Indication: NON-HODGKIN^S LYMPHOMA
  4. GRANULOCYTE COLONY-STIMULATING FACTOR NOS [Concomitant]
     Indication: NON-HODGKIN^S LYMPHOMA

REACTIONS (1)
  - Death [Fatal]
